FAERS Safety Report 23043456 (Version 1)
Quarter: 2023Q4

REPORT INFORMATION
  Report Type: Other
  Country: JP (occurrence: JP)
  Receive Date: 20231009
  Receipt Date: 20231009
  Transmission Date: 20240110
  Serious: Yes (Hospitalization, Other)
  Sender: FDA-Public Use
  Company Number: JP-CHUGAI-2022025317

PATIENT
  Age: 67 Year
  Sex: Female
  Weight: 46 kg

DRUGS (5)
  1. ENSPRYNG [Suspect]
     Active Substance: SATRALIZUMAB-MWGE
     Indication: Neuromyelitis optica spectrum disorder
     Route: 058
     Dates: start: 20210205, end: 202305
  2. ENSPRYNG [Suspect]
     Active Substance: SATRALIZUMAB-MWGE
     Route: 058
     Dates: start: 20230815, end: 20230815
  3. PREDNISOLONE [Suspect]
     Active Substance: PREDNISOLONE
     Indication: Neuromyelitis optica spectrum disorder
     Dosage: UNK
     Route: 065
     Dates: start: 20210205
  4. PREDNISOLONE [Suspect]
     Active Substance: PREDNISOLONE
     Dosage: 2.5 MILLIGRAM
     Route: 065
  5. METHOTREXATE [Suspect]
     Active Substance: METHOTREXATE
     Indication: Product used for unknown indication
     Dosage: UNK
     Route: 065
     Dates: start: 20230718

REACTIONS (9)
  - Neuromyelitis optica spectrum disorder [Unknown]
  - Antimicrobial susceptibility test resistant [Unknown]
  - Septic shock [Recovered/Resolved]
  - Urinary tract infection [Recovered/Resolved]
  - Pneumonia [Unknown]
  - Vomiting [Recovered/Resolved]
  - Device related infection [Recovered/Resolved]
  - Gastrointestinal oedema [Unknown]
  - Therapeutic response decreased [Unknown]

NARRATIVE: CASE EVENT DATE: 20210310
